FAERS Safety Report 22149391 (Version 1)
Quarter: 2023Q1

REPORT INFORMATION
  Report Type: Report from Study
  Country: US (occurrence: US)
  Receive Date: 20230329
  Receipt Date: 20230329
  Transmission Date: 20230417
  Serious: Yes (Other)
  Sender: FDA-Public Use
  Company Number: US-ABBVIE-4707106

PATIENT
  Sex: Female

DRUGS (1)
  1. HUMIRA [Suspect]
     Active Substance: ADALIMUMAB
     Indication: Rheumatoid arthritis
     Dosage: CITRATE FREE?FORM STRENGTH 40 MG
     Route: 058
     Dates: start: 20160801

REACTIONS (7)
  - Intervertebral disc protrusion [Unknown]
  - Osteoarthritis [Unknown]
  - Balance disorder [Unknown]
  - Peripheral swelling [Unknown]
  - Pain in extremity [Unknown]
  - Trigger finger [Unknown]
  - Spinal fusion acquired [Unknown]
